FAERS Safety Report 8887115 (Version 1)
Quarter: 2012Q4

REPORT INFORMATION
  Report Type: 
  Country: US (occurrence: US)
  Receive Date: 20121105
  Receipt Date: 20121105
  Transmission Date: 20130627
  Serious: No
  Sender: FDA-Public Use
  Company Number: US-B.I. PHARMACEUTICALS,INC./RIDGEFIELD-2012-BP-26737BP

PATIENT
  Sex: Female
  Weight: 54 kg

DRUGS (2)
  1. SPIRIVA [Suspect]
     Indication: LUNG NEOPLASM MALIGNANT
     Dosage: 18 mcg
     Route: 055
     Dates: start: 2010
  2. LEVOTHYROXINE [Concomitant]
     Indication: HYPOTHYROIDISM
     Dosage: 50 mcg
     Route: 048

REACTIONS (2)
  - Drug ineffective [Not Recovered/Not Resolved]
  - Product quality issue [Not Recovered/Not Resolved]
